FAERS Safety Report 8361810-1 (Version None)
Quarter: 2012Q2

REPORT INFORMATION
  Report Type: 
  Country: None (occurrence: None)
  Receive Date: 20120515
  Receipt Date: 20120508
  Transmission Date: 20120825
  Serious: Yes (Life-Threatening, Hospitalization)
  Sender: FDA-Public Use
  Company Number: JP-GLAXOSMITHKLINE-B0762781A

PATIENT
  Sex: Female
  Weight: 71 kg

DRUGS (7)
  1. LAMICTAL [Suspect]
     Indication: BIPOLAR I DISORDER
     Dosage: 25MG TWICE PER DAY
     Route: 048
     Dates: start: 20111028, end: 20111111
  2. LAMICTAL [Suspect]
     Dosage: 25MG PER DAY
     Route: 048
     Dates: start: 20111112, end: 20111113
  3. VALPROATE SODIUM [Suspect]
     Indication: BIPOLAR I DISORDER
     Dosage: 1000MG PER DAY
     Route: 048
     Dates: start: 20060602, end: 20111117
  4. ALPRAZOLAM [Concomitant]
     Route: 048
  5. SEROQUEL [Concomitant]
     Route: 048
  6. CLONAZEPAM [Concomitant]
     Route: 048
  7. DESYREL [Concomitant]
     Route: 048

REACTIONS (20)
  - EYE DISCHARGE [None]
  - SKIN DEGENERATIVE DISORDER [None]
  - TOXIC EPIDERMAL NECROLYSIS [None]
  - VULVAL ULCERATION [None]
  - BLISTER [None]
  - SKIN EROSION [None]
  - LYMPHOCYTE PERCENTAGE DECREASED [None]
  - LIP EROSION [None]
  - SCAB [None]
  - MUCOSAL EROSION [None]
  - C-REACTIVE PROTEIN INCREASED [None]
  - RASH [None]
  - ORAL MUCOSA EROSION [None]
  - RASH MACULAR [None]
  - ALANINE AMINOTRANSFERASE INCREASED [None]
  - ERYTHEMA [None]
  - EPIDERMAL NECROSIS [None]
  - PYREXIA [None]
  - NEUTROPHIL PERCENTAGE INCREASED [None]
  - MONOCYTE PERCENTAGE ABNORMAL [None]
